FAERS Safety Report 10744603 (Version 1)
Quarter: 2015Q1

REPORT INFORMATION
  Report Type: Spontaneous
  Country: US (occurrence: None)
  Receive Date: 20150126
  Receipt Date: 20150126
  Transmission Date: 20150721
  Serious: Yes (Other)
  Sender: FDA-Public Use
  Company Number: 201501097

PATIENT
  Age: 65 Year
  Sex: Male

DRUGS (2)
  1. TESTOPEL [Suspect]
     Active Substance: TESTOSTERONE
     Indication: BLOOD TESTOSTERONE DECREASED
     Dosage: IMPLANT
     Dates: start: 20121213, end: 2013
  2. AXIRON [Suspect]
     Active Substance: TESTOSTERONE
     Indication: BLOOD TESTOSTERONE DECREASED
     Route: 061
     Dates: start: 20120503, end: 20121213

REACTIONS (4)
  - Vision blurred [None]
  - Dizziness [None]
  - Cerebrovascular accident [None]
  - Emotional disorder [None]

NARRATIVE: CASE EVENT DATE: 20140121
